FAERS Safety Report 21442880 (Version 1)
Quarter: 2022Q4

REPORT INFORMATION
  Report Type: Report from Study
  Country: US (occurrence: US)
  Receive Date: 20221012
  Receipt Date: 20221012
  Transmission Date: 20230113
  Serious: No
  Sender: FDA-Public Use
  Company Number: US-ABBVIE-4150907

PATIENT
  Sex: Male

DRUGS (3)
  1. SKYRIZI [Suspect]
     Active Substance: RISANKIZUMAB-RZAA
     Indication: Psoriasis
     Dosage: WEEK FOUR?FORM STRENGTH WAS 150 MILLIGRAM
     Route: 058
     Dates: start: 202111, end: 202111
  2. SKYRIZI [Suspect]
     Active Substance: RISANKIZUMAB-RZAA
     Dosage: WEEK ZERO?FORM STRENGTH WAS 150 MILLIGRAM
     Route: 058
     Dates: start: 20211026, end: 20211026
  3. SKYRIZI [Suspect]
     Active Substance: RISANKIZUMAB-RZAA
     Dosage: FORM STRENGTH WAS 150 MILLIGRAM
     Route: 058
     Dates: start: 20220216

REACTIONS (1)
  - Psoriasis [Unknown]
